FAERS Safety Report 8510602-9 (Version None)
Quarter: 2012Q3

REPORT INFORMATION
  Report Type: 
  Country: None (occurrence: None)
  Receive Date: 20120716
  Receipt Date: 20120705
  Transmission Date: 20120928
  Serious: Yes (Life-Threatening, Hospitalization, Other)
  Sender: FDA-Public Use
  Company Number: DE-BIOGENIDEC-2012BI024353

PATIENT
  Age: 52 Year
  Sex: Male

DRUGS (3)
  1. IBUBETA [Concomitant]
     Indication: MULTIPLE SCLEROSIS
     Dates: start: 20020501
  2. AVONEX [Suspect]
     Route: 030
     Dates: start: 20120701
  3. AVONEX [Suspect]
     Indication: MULTIPLE SCLEROSIS
     Route: 030
     Dates: start: 20020501, end: 20120616

REACTIONS (4)
  - GASTRIC ULCER HAEMORRHAGE [None]
  - MULTIPLE SCLEROSIS RELAPSE [None]
  - HEPATITIS B [None]
  - HEPATITIS C [None]
